FAERS Safety Report 9677347 (Version 1)
Quarter: 2013Q4

REPORT INFORMATION
  Report Type: Spontaneous
  Country: US (occurrence: US)
  Receive Date: 20131108
  Receipt Date: 20131108
  Transmission Date: 20140711
  Serious: No
  Sender: FDA-Public Use
  Company Number: US-BAYER-2013-134594

PATIENT
  Sex: Female

DRUGS (1)
  1. BETASERON [Suspect]
     Indication: MULTIPLE SCLEROSIS
     Dosage: 0.25 MG, QD
     Route: 058
     Dates: start: 20110701

REACTIONS (4)
  - Gait disturbance [None]
  - Sensation of heaviness [None]
  - Paraesthesia [None]
  - Injection site bruising [None]
